FAERS Safety Report 12654781 (Version 1)
Quarter: 2016Q3

REPORT INFORMATION
  Report Type: Spontaneous
  Country: US (occurrence: None)
  Receive Date: 20160812
  Receipt Date: 20160812
  Transmission Date: 20161109
  Serious: No
  Sender: FDA-Public Use
  Company Number: UNT-2016-011892

PATIENT
  Age: 74 Year
  Sex: Female
  Weight: 59 kg

DRUGS (2)
  1. TYVASO [Suspect]
     Active Substance: TREPROSTINIL
     Dosage: 18-72 MICROGRAMS,QID, INHALATION
     Route: 055
     Dates: start: 20150803
  2. OPSUMIT [Concomitant]
     Active Substance: MACITENTAN

REACTIONS (5)
  - Flushing [None]
  - Incorrect dose administered by device [None]
  - Headache [None]
  - Product use issue [None]
  - Device issue [None]
